FAERS Safety Report 5981876-3 (Version None)
Quarter: 2008Q4

REPORT INFORMATION
  Report Type: 
  Country: None (occurrence: None)
  Receive Date: 20081205
  Receipt Date: 20081124
  Transmission Date: 20090506
  Serious: Yes (Death, Hospitalization)
  Sender: FDA-Public Use
  Company Number: FR-GENENTECH-268174

PATIENT
  Sex: Male

DRUGS (6)
  1. MABTHERA [Suspect]
     Indication: CONNECTIVE TISSUE DISORDER
     Dosage: 1000 MG, UNK
     Route: 042
     Dates: start: 20070101, end: 20080701
  2. PREDNISONE TAB [Suspect]
     Indication: CONNECTIVE TISSUE DISORDER
     Dosage: 2 MG, QD
     Route: 065
     Dates: start: 20020101
  3. METHOTREXATE [Suspect]
     Indication: CONNECTIVE TISSUE DISORDER
     Dosage: 10 MG, 1/WEEK
     Route: 065
     Dates: start: 20070101, end: 20080801
  4. IDEOS [Concomitant]
     Indication: DRUG USE FOR UNKNOWN INDICATION
  5. COVERSYL [Concomitant]
     Indication: DRUG USE FOR UNKNOWN INDICATION
     Dosage: 4 MG, UNK
  6. PREVISCAN [Concomitant]
     Indication: DRUG USE FOR UNKNOWN INDICATION

REACTIONS (5)
  - CEREBRAL TOXOPLASMOSIS [None]
  - FALL [None]
  - SEPTIC SHOCK [None]
  - STATUS EPILEPTICUS [None]
  - TOXOPLASMOSIS [None]
